FAERS Safety Report 4275765-2 (Version None)
Quarter: 2004Q1

REPORT INFORMATION
  Report Type: 
  Country: None (occurrence: None)
  Receive Date: 20040116
  Receipt Date: 20031229
  Transmission Date: 20041129
  Serious: Yes (Other)
  Sender: FDA-Public Use
  Company Number: 2003-12-1965

PATIENT
  Age: 13 Year
  Sex: Female

DRUGS (1)
  1. CORICIDIN [Suspect]
     Dosage: 2-4 TABLETS ORAL
     Route: 048
     Dates: start: 20030924, end: 20030924

REACTIONS (2)
  - DIZZINESS [None]
  - OVERDOSE [None]
